FAERS Safety Report 7678004-5 (Version None)
Quarter: 2011Q3

REPORT INFORMATION
  Report Type: 
  Country: None (occurrence: None)
  Receive Date: 20110811
  Receipt Date: 20110802
  Transmission Date: 20111222
  Serious: Yes (Death)
  Sender: FDA-Public Use
  Company Number: US-GLAXOSMITHKLINE-A0940298A

PATIENT
  Age: 47 Year
  Sex: Female

DRUGS (8)
  1. MOTRIN [Concomitant]
  2. DEXAMETHASONE [Concomitant]
  3. LORAZEPAM [Concomitant]
  4. LEVOXYL [Concomitant]
  5. NEXIUM [Concomitant]
  6. TYKERB [Suspect]
     Indication: PRODUCT USED FOR UNKNOWN INDICATION
     Dosage: 1000MG PER DAY
     Route: 048
  7. EFFEXOR [Concomitant]
  8. TOPAMAX [Concomitant]

REACTIONS (1)
  - DEATH [None]
